FAERS Safety Report 5770453-5 (Version None)
Quarter: 2008Q2

REPORT INFORMATION
  Report Type: 
  Country: None (occurrence: None)
  Receive Date: 20080613
  Receipt Date: 20080501
  Transmission Date: 20081010
  Serious: No
  Sender: FDA-Public Use
  Company Number: US-ABBOTT-08P-163-0449834-00

PATIENT
  Sex: Female

DRUGS (5)
  1. HUMIRA [Suspect]
     Indication: RHEUMATOID ARTHRITIS
     Route: 058
     Dates: start: 20080425
  2. METHOTREXATE [Concomitant]
     Indication: DRUG USE FOR UNKNOWN INDICATION
  3. UNKNOWN BLOOD PRESSURE PILLS [Concomitant]
     Indication: DRUG USE FOR UNKNOWN INDICATION
  4. UNKNOWN CHOLESTEROL MEDICATIONS [Concomitant]
     Indication: DRUG USE FOR UNKNOWN INDICATION
  5. MELOXICAM [Concomitant]
     Indication: DRUG USE FOR UNKNOWN INDICATION

REACTIONS (1)
  - DIZZINESS [None]
